FAERS Safety Report 5727387-1 (Version None)
Quarter: 2008Q2

REPORT INFORMATION
  Report Type: 
  Country: None (occurrence: None)
  Receive Date: 20080430
  Receipt Date: 20080421
  Transmission Date: 20081010
  Serious: Yes (Death, Congenital Anomaly)
  Sender: FDA-Public Use
  Company Number: 2008AP001057

PATIENT
  Sex: Female

DRUGS (1)
  1. PAROXETINE HYDROCHLORIDE [Suspect]
     Dosage: TRPL
     Route: 064

REACTIONS (8)
  - ACUTE RESPIRATORY DISTRESS SYNDROME [None]
  - APPARENT LIFE THREATENING EVENT [None]
  - BRONCHOPULMONARY DYSPLASIA [None]
  - HEART BLOCK CONGENITAL [None]
  - LEGAL PROBLEM [None]
  - MATERNAL DRUGS AFFECTING FOETUS [None]
  - MULTIPLE CONGENITAL ABNORMALITIES [None]
  - PULMONARY HYPERTENSION [None]
